FAERS Safety Report 14624603 (Version 2)
Quarter: 2018Q2

REPORT INFORMATION
  Report Type: Report from Study
  Country: ML (occurrence: ML)
  Receive Date: 20180312
  Receipt Date: 20180403
  Transmission Date: 20180711
  Serious: Yes (Other)
  Sender: FDA-Public Use
  Company Number: PHHY2018ML039354

PATIENT
  Age: 53 Year
  Sex: Male

DRUGS (1)
  1. GLIVEC [Suspect]
     Active Substance: IMATINIB MESYLATE
     Indication: CHRONIC MYELOID LEUKAEMIA
     Dosage: 600 MG, UNK
     Route: 065
     Dates: start: 20100224, end: 20180228

REACTIONS (3)
  - Second primary malignancy [Unknown]
  - Non-Hodgkin^s lymphoma [Unknown]
  - Lymphadenitis [Unknown]

NARRATIVE: CASE EVENT DATE: 201712
